FAERS Safety Report 24065759 (Version 2)
Quarter: 2024Q3

REPORT INFORMATION
  Report Type: Spontaneous
  Country: FR (occurrence: FR)
  Receive Date: 20240709
  Receipt Date: 20240910
  Transmission Date: 20241017
  Serious: Yes (Death, Other)
  Sender: AMGEN
  Company Number: FR-AMGEN-FRASP2024132629

PATIENT

DRUGS (2)
  1. BEVACIZUMAB [Suspect]
     Active Substance: BEVACIZUMAB
     Indication: Colorectal cancer metastatic
     Dosage: UNK
     Route: 065
  2. CAPECITABINE\OXALIPLATIN [Concomitant]
     Active Substance: CAPECITABINE\OXALIPLATIN
     Indication: Colorectal cancer metastatic
     Dosage: UNK
     Route: 065

REACTIONS (3)
  - Death [Fatal]
  - Adverse event [Unknown]
  - Therapy partial responder [Unknown]
